FAERS Safety Report 4666589-2 (Version None)
Quarter: 2005Q2

REPORT INFORMATION
  Report Type: 
  Country: None (occurrence: None)
  Receive Date: 20050519
  Receipt Date: 20041126
  Transmission Date: 20051028
  Serious: Yes (Other)
  Sender: FDA-Public Use
  Company Number: PHBS2004CH16128

PATIENT
  Age: 45 Year
  Sex: Male

DRUGS (9)
  1. ZOMETA [Suspect]
     Dosage: 4 MG, QMO
     Route: 042
     Dates: start: 20040512
  2. AREDIA [Suspect]
     Indication: OSTEOPOROSIS
     Dosage: 90 MG, Q3MO
     Route: 042
     Dates: start: 19980819, end: 20040401
  3. PREDNISON GALEPHARM [Concomitant]
     Indication: MULTIPLE MYELOMA
     Dosage: 20 MG/D
     Route: 065
  4. KENACORT A ORABASE [Concomitant]
     Route: 048
  5. ANTRA [Concomitant]
     Dosage: 20 MG/D
     Route: 065
  6. SINTROM [Concomitant]
     Route: 065
  7. MYCOSTATIN [Concomitant]
     Indication: STOMATITIS
     Dosage: 10 ML/D
     Route: 065
  8. TESTOVIRON [Concomitant]
     Dosage: 250 MG, QMO
     Route: 042
  9. ATACAND [Concomitant]
     Indication: HYPERTENSION
     Dosage: 16 MG/D
     Route: 065

REACTIONS (4)
  - OSTEITIS [None]
  - OSTEONECROSIS [None]
  - SEQUESTRECTOMY [None]
  - TOOTH LOSS [None]
